FAERS Safety Report 15609211 (Version 2)
Quarter: 2018Q4

REPORT INFORMATION
  Report Type: Spontaneous
  Country: None (occurrence: FR)
  Receive Date: 20181112
  Receipt Date: 20181224
  Transmission Date: 20190205
  Serious: Yes (Disabling, Other)
  Sender: FDA-Public Use
  Company Number: FR-ALLERGAN-1853040US

PATIENT
  Age: 82 Year
  Sex: Female

DRUGS (1)
  1. OZURDEX [Suspect]
     Active Substance: DEXAMETHASONE
     Indication: EYE OEDEMA
     Dosage: 0.7 MG, SINGLE
     Route: 031

REACTIONS (6)
  - Foreign body in eye [Not Recovered/Not Resolved]
  - Off label use [Unknown]
  - Eye disorder [Not Recovered/Not Resolved]
  - Product quality issue [Unknown]
  - Retinal vein occlusion [Not Recovered/Not Resolved]
  - Vision blurred [Not Recovered/Not Resolved]
